FAERS Safety Report 8532033-8 (Version None)
Quarter: 2012Q3

REPORT INFORMATION
  Report Type: 
  Country: None (occurrence: None)
  Receive Date: 20120723
  Receipt Date: 20100813
  Transmission Date: 20120928
  Serious: Yes (Hospitalization)
  Sender: FDA-Public Use
  Company Number: US-GLAXOSMITHKLINE-A0876767A

PATIENT
  Age: 56 Year
  Sex: Female
  Weight: 132.7 kg

DRUGS (10)
  1. LIPITOR [Concomitant]
  2. LANSOPRAZOLE [Concomitant]
  3. ATORVASTATIN [Concomitant]
  4. FLONASE [Concomitant]
  5. AVANDIA [Suspect]
     Indication: DIABETES MELLITUS
     Dosage: 4MG PER DAY
     Route: 048
     Dates: start: 20030101, end: 20050101
  6. ADVAIR DISKUS 100/50 [Concomitant]
  7. HUMALOG [Concomitant]
  8. PRINIVIL [Concomitant]
  9. OMEPRAZOLE [Concomitant]
  10. ALBUTEROL [Concomitant]

REACTIONS (2)
  - CEREBROVASCULAR ACCIDENT [None]
  - CARDIAC FAILURE CONGESTIVE [None]
